FAERS Safety Report 6357283-0 (Version None)
Quarter: 2009Q3

REPORT INFORMATION
  Report Type: 
  Country: None (occurrence: None)
  Receive Date: 20090916
  Receipt Date: 20090904
  Transmission Date: 20100115
  Serious: Yes (Hospitalization)
  Sender: FDA-Public Use
  Company Number: PHHY2009JP33009

PATIENT
  Sex: Female
  Weight: 50 kg

DRUGS (6)
  1. CGS 20267 T30748+TAB [Suspect]
     Indication: BREAST CANCER
     Dosage: 2.5 MG/DAY
     Route: 048
     Dates: start: 20080303
  2. NOLVADEX [Concomitant]
     Dosage: UNK
     Dates: start: 20010411, end: 20080302
  3. ONON [Concomitant]
     Indication: ASTHMA
     Dosage: 4 DF, UNK
     Route: 048
  4. THEO-DUR [Concomitant]
     Indication: ASTHMA
     Dosage: 400 MG, UNK
     Route: 048
  5. PREDONINE [Concomitant]
     Indication: ASTHMA
     Dosage: 20 MG, UNK
     Route: 048
     Dates: start: 20081126, end: 20081210
  6. GASTER [Concomitant]
     Dosage: 20 MG, UNK
     Route: 048
     Dates: start: 20081126, end: 20081210

REACTIONS (2)
  - ASTHMA [None]
  - CONDITION AGGRAVATED [None]
